FAERS Safety Report 22040803 (Version 1)
Quarter: 2023Q1

REPORT INFORMATION
  Report Type: Spontaneous
  Country: CN (occurrence: CN)
  Receive Date: 20230227
  Receipt Date: 20230227
  Transmission Date: 20230417
  Serious: Yes (Other)
  Sender: FDA-Public Use
  Company Number: CN-PFIZER INC-PV202300035434

PATIENT
  Age: 48 Year
  Sex: Male

DRUGS (5)
  1. LINEZOLID [Suspect]
     Active Substance: LINEZOLID
     Indication: Pulmonary tuberculosis
     Dosage: 0.6 G, 1X/DAY
     Route: 048
     Dates: start: 20220722, end: 20220813
  2. PROTIONAMIDE [Suspect]
     Active Substance: PROTIONAMIDE
     Indication: Pulmonary tuberculosis
     Dosage: 0.3 G, 2X/DAY
     Route: 048
     Dates: start: 20220722, end: 20220813
  3. LEVOFLOXACIN [Suspect]
     Active Substance: LEVOFLOXACIN
     Indication: Pulmonary tuberculosis
     Dosage: 0.5 G, 1X/DAY
     Route: 048
     Dates: start: 20220722, end: 20220813
  4. CLOFAZIMINE [Suspect]
     Active Substance: CLOFAZIMINE
     Indication: Pulmonary tuberculosis
     Dosage: 0.1 G, 1X/DAY
     Route: 048
     Dates: start: 20220722, end: 20220813
  5. CYCLOSERINE [Suspect]
     Active Substance: CYCLOSERINE
     Indication: Pulmonary tuberculosis
     Dosage: 0.25 G, 2X/DAY
     Route: 048
     Dates: start: 20220722, end: 20220813

REACTIONS (5)
  - Gastritis [Recovering/Resolving]
  - Asthenia [Recovering/Resolving]
  - Decreased appetite [Recovering/Resolving]
  - Disease recurrence [Recovering/Resolving]
  - Gastrointestinal disorder [Recovering/Resolving]

NARRATIVE: CASE EVENT DATE: 20220813
